FAERS Safety Report 21878081 (Version 4)
Quarter: 2023Q1

REPORT INFORMATION
  Report Type: Report from Study
  Country: US (occurrence: US)
  Receive Date: 20230118
  Receipt Date: 20230131
  Transmission Date: 20230418
  Serious: No
  Sender: FDA-Public Use
  Company Number: US-002147023-NVSC2023US009316

PATIENT
  Sex: Female

DRUGS (1)
  1. AFINITOR [Suspect]
     Active Substance: EVEROLIMUS
     Indication: Product used for unknown indication
     Dosage: UNK
     Route: 065

REACTIONS (8)
  - Sinus tachycardia [Unknown]
  - Product physical issue [Unknown]
  - Product packaging issue [Unknown]
  - Blood pressure increased [Unknown]
  - Stress [Unknown]
  - Product prescribing error [Unknown]
  - Product availability issue [Unknown]
  - Mental disorder [Unknown]
